FAERS Safety Report 20212511 (Version 10)
Quarter: 2023Q1

REPORT INFORMATION
  Report Type: Spontaneous
  Country: IN (occurrence: IN)
  Receive Date: 20211221
  Receipt Date: 20230207
  Transmission Date: 20230418
  Serious: Yes (Other)
  Sender: FDA-Public Use
  Company Number: IN-PFIZER INC-202101150341

PATIENT
  Age: 66 Year
  Sex: Female
  Weight: 68.2 kg

DRUGS (12)
  1. PALBOCICLIB [Suspect]
     Active Substance: PALBOCICLIB
     Indication: Breast cancer metastatic
     Dosage: 125 MG, 1X/DAY, 21 DAYS OUT OF 28 DAYS
     Route: 048
     Dates: start: 20210223
  2. PALBOCICLIB [Suspect]
     Active Substance: PALBOCICLIB
     Dosage: 125 MG, 1X/DAY
     Route: 048
     Dates: start: 20210604, end: 20211028
  3. PALBOCICLIB [Suspect]
     Active Substance: PALBOCICLIB
     Dosage: 100 MG, ALONG WITH FOOD; MORNING: 1, NO. OF DAYS: 21 DAYS OUT OF 28 DAYS
     Route: 048
     Dates: start: 20211028
  4. PALBOCICLIB [Suspect]
     Active Substance: PALBOCICLIB
     Dosage: 100 MG
     Route: 048
  5. PALBOCICLIB [Suspect]
     Active Substance: PALBOCICLIB
     Dosage: 75 MG, 1X/DAY
     Route: 048
  6. PALBOCICLIB [Suspect]
     Active Substance: PALBOCICLIB
     Dosage: 75 MG (CONTINUE FOR 1 MORE WEEK)
     Route: 048
  7. FULVESTRANT [Concomitant]
     Active Substance: FULVESTRANT
     Dosage: 500 MG
     Route: 030
  8. ZOLEDRONIC ACID [Concomitant]
     Active Substance: ZOLEDRONIC ACID
     Dosage: 4 MG, ONCE 3MONTH
  9. ONCOLIFE PLUS [Concomitant]
     Dosage: UNK, 1X/DAY, MORNING: 1 TAB
  10. CALPOL [Concomitant]
     Active Substance: ACETAMINOPHEN
     Dosage: 500 MG, 3X/DAY (MORNING: 1; AFTERNOON: 1; NIGHT: 1; NO. OF DAYS: 3 DAYS)
  11. PIRITON CS [Concomitant]
     Dosage: 2 DF, 3X/DAY (UNK, 3X/DAY (MORNING: 2 TSP; AFTERNOON: 2 TSP; NIGHT: 2 TSP; 30 DAYS)
  12. RELIGRAST [Concomitant]
     Dosage: 300 UG, UNK (3 DAYS )
     Route: 058

REACTIONS (10)
  - Myelosuppression [Unknown]
  - White blood cell count decreased [Not Recovered/Not Resolved]
  - Blood pressure increased [Unknown]
  - Cough [Unknown]
  - Heart rate increased [Unknown]
  - Platelet count decreased [Unknown]
  - Neoplasm progression [Unknown]
  - Pyrexia [Unknown]
  - Alanine aminotransferase increased [Unknown]
  - Aspartate aminotransferase increased [Unknown]

NARRATIVE: CASE EVENT DATE: 20210628
